FAERS Safety Report 21903370 (Version 1)
Quarter: 2023Q1

REPORT INFORMATION
  Report Type: Spontaneous
  Country: US (occurrence: None)
  Receive Date: 20230123
  Receipt Date: 20230123
  Transmission Date: 20230417
  Serious: Yes (Other)
  Sender: FDA-Public Use
  Company Number: None

PATIENT
  Sex: Female

DRUGS (5)
  1. BOTOX [Suspect]
     Active Substance: ONABOTULINUMTOXINA
     Indication: Migraine
     Dosage: OTHER STRENGTH : 200 UNIT;?OTHER QUANTITY : 200 UNIT;?FREQUENCY : AS DIRECTED;?
     Dates: start: 20190307
  2. IMITREX TAB [Concomitant]
  3. LETROZOLE [Concomitant]
     Active Substance: LETROZOLE
  4. PAXIL CR TAB [Concomitant]
  5. TOPIRAMATE POW [Concomitant]

REACTIONS (1)
  - Breast cancer [None]
